FAERS Safety Report 16299675 (Version 2)
Quarter: 2020Q4

REPORT INFORMATION
  Report Type: Spontaneous
  Country: US (occurrence: US)
  Receive Date: 20190510
  Receipt Date: 20201222
  Transmission Date: 20210113
  Serious: Yes (Other)
  Sender: FDA-Public Use
  Company Number: US-ASTRAZENECA-2019SE63944

PATIENT
  Age: 23441 Day
  Sex: Male
  Weight: 124.3 kg

DRUGS (68)
  1. PREVACID [Suspect]
     Active Substance: LANSOPRAZOLE
     Indication: GASTROOESOPHAGEAL REFLUX DISEASE
     Dosage: GENERIC
     Route: 065
     Dates: start: 20080722, end: 20080825
  2. AMITRIPTYLINE [Concomitant]
     Active Substance: AMITRIPTYLINE
  3. ASCORBIC ACID. [Concomitant]
     Active Substance: ASCORBIC ACID
  4. IPRATROPIUM [Concomitant]
     Active Substance: IPRATROPIUM
  5. HYDROCORTISONE. [Concomitant]
     Active Substance: HYDROCORTISONE
  6. ABSORBASE [Concomitant]
     Active Substance: EMOLLIENTS
  7. VALSARTAN. [Concomitant]
     Active Substance: VALSARTAN
  8. PREVACID [Suspect]
     Active Substance: LANSOPRAZOLE
     Indication: GASTROOESOPHAGEAL REFLUX DISEASE
     Route: 065
  9. AMLODIPINE [Concomitant]
     Active Substance: AMLODIPINE BESYLATE
     Indication: BLOOD PRESSURE ABNORMAL
     Dates: start: 2008, end: 2017
  10. FUROSEMIDE. [Concomitant]
     Active Substance: FUROSEMIDE
     Indication: FLUID IMBALANCE
     Dates: start: 2008, end: 2017
  11. GABAPENTIN. [Concomitant]
     Active Substance: GABAPENTIN
     Indication: PAIN
     Dates: start: 2008, end: 2017
  12. CHLORHEXIDINE GLUCONATE. [Concomitant]
     Active Substance: CHLORHEXIDINE GLUCONATE
  13. CYANOCOBALAMIN. [Concomitant]
     Active Substance: CYANOCOBALAMIN
  14. MORPHINE [Concomitant]
     Active Substance: MORPHINE
  15. NIFEDIPINE. [Concomitant]
     Active Substance: NIFEDIPINE
  16. HYDRALAZINE [Concomitant]
     Active Substance: HYDRALAZINE HYDROCHLORIDE
  17. ELIQUIS [Concomitant]
     Active Substance: APIXABAN
     Indication: ANTICOAGULANT THERAPY
     Dates: start: 2015
  18. OXYCODONE [Concomitant]
     Active Substance: OXYCODONE
  19. OXYMETAZOLINE [Concomitant]
     Active Substance: OXYMETAZOLINE
  20. ABILIFY [Concomitant]
     Active Substance: ARIPIPRAZOLE
  21. ISOSORBIDE MONONITRATE. [Concomitant]
     Active Substance: ISOSORBIDE MONONITRATE
  22. ARTIFICIAL TEARS [Concomitant]
     Active Substance: GLYCERIN\HYPROMELLOSES\POLYETHYLENE GLYCOL 400
  23. SERTRALINE [Concomitant]
     Active Substance: SERTRALINE HYDROCHLORIDE
  24. SODIUM FLUORIDE. [Concomitant]
     Active Substance: SODIUM FLUORIDE
  25. ZOLPIDEM [Concomitant]
     Active Substance: ZOLPIDEM TARTRATE
  26. PRILOSEC [Suspect]
     Active Substance: OMEPRAZOLE MAGNESIUM
     Indication: GASTROOESOPHAGEAL REFLUX DISEASE
     Route: 048
  27. LISINOPRIL. [Concomitant]
     Active Substance: LISINOPRIL
     Indication: BLOOD PRESSURE ABNORMAL
     Dates: start: 2008, end: 2017
  28. AMOXICILLIN/CLAV [Concomitant]
  29. CITALOPRAM [Concomitant]
     Active Substance: CITALOPRAM HYDROBROMIDE
  30. IBUPROFEN. [Concomitant]
     Active Substance: IBUPROFEN
  31. NITROGLYCERIN. [Concomitant]
     Active Substance: NITROGLYCERIN
  32. NICOTINE. [Concomitant]
     Active Substance: NICOTINE
  33. ENALAPRIL [Concomitant]
     Active Substance: ENALAPRIL
  34. DOCUSATE SODIUM. [Concomitant]
     Active Substance: DOCUSATE SODIUM
  35. SIMVASTATIN. [Concomitant]
     Active Substance: SIMVASTATIN
  36. INSULIN [Concomitant]
     Active Substance: INSULIN NOS
  37. ALBUTEROL. [Concomitant]
     Active Substance: ALBUTEROL
  38. CLONIDINE. [Concomitant]
     Active Substance: CLONIDINE
  39. FLUTICASONE. [Concomitant]
     Active Substance: FLUTICASONE
  40. COLESTIPOL [Concomitant]
     Active Substance: COLESTIPOL
  41. BENZONATATE. [Concomitant]
     Active Substance: BENZONATATE
  42. POLYETHYLENE GLYCOL [Concomitant]
     Active Substance: POLYETHYLENE GLYCOLS
  43. PRILOSEC OTC [Suspect]
     Active Substance: OMEPRAZOLE MAGNESIUM
     Indication: GASTROOESOPHAGEAL REFLUX DISEASE
     Route: 048
     Dates: start: 2003
  44. ASPIRIN. [Concomitant]
     Active Substance: ASPIRIN
     Indication: ANTICOAGULANT THERAPY
     Dates: start: 2015
  45. PLAVIX [Concomitant]
     Active Substance: CLOPIDOGREL BISULFATE
     Indication: HEART RATE ABNORMAL
     Dates: start: 2015
  46. RANITIDINE. [Concomitant]
     Active Substance: RANITIDINE
     Dosage: GENERIC
     Dates: start: 20070925
  47. RISPERDAL [Concomitant]
     Active Substance: RISPERIDONE
  48. SILDENAFIL. [Concomitant]
     Active Substance: SILDENAFIL
  49. NYSTATIN. [Concomitant]
     Active Substance: NYSTATIN
  50. TIOTROPIUM [Concomitant]
     Active Substance: TIOTROPIUM
  51. METFORMIN [Concomitant]
     Active Substance: METFORMIN HYDROCHLORIDE
     Indication: DIABETES MELLITUS
     Dates: start: 2008, end: 2017
  52. FERROUS SULFATE. [Concomitant]
     Active Substance: FERROUS SULFATE
  53. SODIUM CHLORIDE. [Concomitant]
     Active Substance: SODIUM CHLORIDE
  54. POTASSIUM CHLORIDE. [Concomitant]
     Active Substance: POTASSIUM CHLORIDE
  55. DIVALPROEX [Concomitant]
     Active Substance: DIVALPROEX SODIUM
  56. GLUCOSE [Concomitant]
     Active Substance: DEXTROSE
  57. UREA. [Concomitant]
     Active Substance: UREA
  58. ALBIGLUTIDE [Concomitant]
     Active Substance: ALBIGLUTIDE
  59. SENNOSIDES. [Concomitant]
     Active Substance: SENNOSIDES
  60. PRILOSEC [Suspect]
     Active Substance: OMEPRAZOLE MAGNESIUM
     Indication: GASTROOESOPHAGEAL REFLUX DISEASE
     Route: 065
     Dates: start: 20060301, end: 20160106
  61. LABETALOL [Concomitant]
     Active Substance: LABETALOL\LABETALOL HYDROCHLORIDE
  62. HEPARIN [Concomitant]
     Active Substance: HEPARIN SODIUM
  63. MULTIVITAMINS [Concomitant]
     Active Substance: VITAMINS
  64. NOVOLOG [Concomitant]
     Active Substance: INSULIN ASPART
  65. SALMETEROL [Concomitant]
     Active Substance: SALMETEROL
  66. VITAMIN D [Concomitant]
     Active Substance: VITAMIN D NOS
  67. MUPIROCIN. [Concomitant]
     Active Substance: MUPIROCIN
  68. WITCH HAZEL. [Concomitant]
     Active Substance: WITCH HAZEL

REACTIONS (4)
  - Acute kidney injury [Unknown]
  - Renal failure [Unknown]
  - Chronic kidney disease [Not Recovered/Not Resolved]
  - End stage renal disease [Unknown]

NARRATIVE: CASE EVENT DATE: 20150412
